FAERS Safety Report 5021008-1 (Version None)
Quarter: 2006Q2

REPORT INFORMATION
  Report Type: 
  Country: None (occurrence: None)
  Receive Date: 20060608
  Receipt Date: 20051215
  Transmission Date: 20061013
  Serious: Yes (Disabling, Other)
  Sender: FDA-Public Use
  Company Number: PHBS2005JP18646

PATIENT
  Age: 77 Year
  Sex: Male
  Weight: 62 kg

DRUGS (14)
  1. GLEEVEC [Suspect]
     Indication: GASTROINTESTINAL STROMAL TUMOUR
     Dosage: 200 MG/D
     Route: 048
     Dates: start: 20051031, end: 20051107
  2. GLEEVEC [Suspect]
     Dosage: 400 MG/D
     Dates: start: 20051108, end: 20051216
  3. GASTER [Concomitant]
     Dosage: 20 MG/D
     Dates: start: 20051015
  4. LENDORMIN [Concomitant]
     Dosage: 0.25 MG/D
     Route: 048
     Dates: start: 20051127
  5. LASIX [Concomitant]
     Dosage: 20 MG/D
     Dates: start: 20051128
  6. INTRALIPID 10% [Concomitant]
     Dosage: 250 ML/D
     Route: 041
     Dates: start: 20051114
  7. HICALIQ [Concomitant]
     Dosage: 900 DF/D
     Route: 041
     Dates: start: 20051117
  8. MULTIVITAMIN ADDITIVE [Concomitant]
     Dates: start: 20051117, end: 20051214
  9. MINERALIN [Concomitant]
     Dosage: 2 ML/D
     Dates: start: 20051118, end: 20051216
  10. AMIYU [Concomitant]
     Dosage: 100 ML/D
     Dates: start: 20051119
  11. RHYTHMY [Concomitant]
     Dosage: 1 MG/D
     Route: 048
     Dates: start: 20051125, end: 20051127
  12. ALTAT [Concomitant]
     Dosage: 75 MG/D
     Route: 048
     Dates: end: 20051114
  13. BLOPRESS [Concomitant]
     Dosage: 8 MG/D
     Route: 048
     Dates: end: 20051112
  14. ARTIST [Concomitant]
     Dosage: 10 MG/D
     Route: 048
     Dates: end: 20051112

REACTIONS (5)
  - DYSPNOEA [None]
  - FLUID RETENTION [None]
  - HYPOALBUMINAEMIA [None]
  - NAUSEA [None]
  - PLEURAL EFFUSION [None]
